FAERS Safety Report 5631667-8 (Version None)
Quarter: 2008Q1

REPORT INFORMATION
  Report Type: 
  Country: None (occurrence: None)
  Receive Date: 20080213
  Receipt Date: 20080128
  Transmission Date: 20080703
  Serious: Yes (Hospitalization, Other)
  Sender: FDA-Public Use
  Company Number: DSA_30957_2007

PATIENT
  Sex: Male

DRUGS (13)
  1. TAVOR /00273201/ (TAVOR - LORAZEPAM)(0.5 MG, 0.5 MG) [Suspect]
     Indication: DRUG USE FOR UNKNOWN INDICATION
     Dosage: (0.5 MG QD; ORAL), (0.5 MG QD ORAL)
     Route: 048
     Dates: end: 20071101
  2. TAVOR /00273201/ (TAVOR - LORAZEPAM)(0.5 MG, 0.5 MG) [Suspect]
     Indication: DRUG USE FOR UNKNOWN INDICATION
     Dosage: (0.5 MG QD; ORAL), (0.5 MG QD ORAL)
     Route: 048
     Dates: start: 20071101
  3. ACETYLSALICYLIC ACID SRT [Suspect]
     Indication: DRUG USE FOR UNKNOWN INDICATION
     Dosage: 9100 MG QD ORAL)
     Route: 048
  4. METOPROLOL SUCCINATE [Suspect]
     Indication: DRUG USE FOR UNKNOWN INDICATION
     Dosage: (0.5 MG QD ORAL)
  5. INSULIN [Suspect]
     Indication: DRUG USE FOR UNKNOWN INDICATION
     Dosage: (DF ORAL)
     Route: 048
  6. CARBIDOPA AND LEVODOPA [Suspect]
     Indication: DRUG USE FOR UNKNOWN INDICATION
     Dosage: (1 DF TID DF ORAL)
     Route: 048
  7. LEVOTHYROXINE SODIUM [Suspect]
     Indication: DRUG USE FOR UNKNOWN INDICATION
     Dosage: (75 UG QD ORAL)
     Route: 048
  8. LISINOPRIL [Suspect]
     Indication: DRUG USE FOR UNKNOWN INDICATION
     Dosage: (20 MG QD ORAL)
     Route: 048
  9. METFORMIN HCL [Suspect]
     Indication: DRUG USE FOR UNKNOWN INDICATION
     Dosage: (20 MG BID ORAL)
     Route: 048
  10. NITREPRESS (NITREPRESS - NITRENDIPINE) [Suspect]
     Dosage: (20 MG BID)
  11. SIMVASTATIN [Suspect]
     Indication: DRUG USE FOR UNKNOWN INDICATION
     Dosage: (20 MG QD ORAL)
     Route: 048
  12. TAMSULOSIN HCL [Suspect]
     Indication: DRUG USE FOR UNKNOWN INDICATION
     Dosage: (1 DF QD ORAL)
     Route: 048
  13. TORSEMIDE [Suspect]
     Indication: DRUG USE FOR UNKNOWN INDICATION
     Dosage: ( 5 MG QD ORAL)
     Route: 048

REACTIONS (14)
  - ARRHYTHMIA [None]
  - ATRIAL FIBRILLATION [None]
  - BENIGN PROSTATIC HYPERPLASIA [None]
  - CEREBRAL ATROPHY [None]
  - CEREBROVASCULAR ACCIDENT [None]
  - DIABETIC NEUROPATHY [None]
  - DRUG ABUSE [None]
  - DRUG WITHDRAWAL SYNDROME [None]
  - HYPERLIPIDAEMIA [None]
  - HYPERTENSION [None]
  - LACUNAR INFARCTION [None]
  - PARKINSON'S DISEASE [None]
  - PSYCHOSOMATIC DISEASE [None]
  - TYPE 2 DIABETES MELLITUS [None]
